FAERS Safety Report 5668392-3 (Version None)
Quarter: 2008Q1

REPORT INFORMATION
  Report Type: 
  Country: None (occurrence: None)
  Receive Date: 20080315
  Receipt Date: 20080225
  Transmission Date: 20080703
  Serious: No
  Sender: FDA-Public Use
  Company Number: US-ABBOTT-08P-163-0439816-00

PATIENT
  Sex: Female
  Weight: 67.646 kg

DRUGS (17)
  1. HUMIRA [Suspect]
     Indication: RHEUMATOID ARTHRITIS
     Route: 058
     Dates: start: 20071101, end: 20080118
  2. HUMIRA [Suspect]
     Dosage: SYRINGE
     Route: 058
     Dates: start: 20080118, end: 20080215
  3. HUMIRA [Suspect]
     Dosage: SYRINGE
     Route: 058
     Dates: start: 20080118, end: 20080215
  4. HUMIRA [Suspect]
     Dosage: PEN
     Route: 058
     Dates: start: 20071001, end: 20071001
  5. VENLAFAXINE HCL [Concomitant]
     Indication: DEPRESSION
     Route: 048
  6. VENLAFAXINE HCL [Concomitant]
     Route: 048
     Dates: end: 20080215
  7. METHYLPHENIDATE HCL [Concomitant]
     Indication: ATTENTION DEFICIT/HYPERACTIVITY DISORDER
     Route: 048
     Dates: end: 20080225
  8. GENERIC LOPRESSOR [Concomitant]
     Indication: HYPERTENSION
     Route: 048
  9. CARISOPRODOL [Concomitant]
     Indication: MYALGIA
     Route: 048
  10. PREDNISONE [Concomitant]
     Indication: RHEUMATOID ARTHRITIS
     Route: 048
  11. FOLIC ACID [Concomitant]
     Indication: VITAMIN SUPPLEMENTATION
     Route: 048
  12. GABAPENTIN [Concomitant]
     Indication: FIBROMYALGIA
     Route: 048
  13. TRAZODONE HCL [Concomitant]
     Indication: SLEEP DISORDER THERAPY
     Route: 048
  14. METHOTREXATE [Concomitant]
     Indication: RHEUMATOID ARTHRITIS
     Dosage: 62.5 TABS WEEKLY
     Route: 048
  15. AMOTREX [Concomitant]
     Indication: DRUG USE FOR UNKNOWN INDICATION
     Route: 048
  16. ESOMEPRAZOLE MAGNESIUM [Concomitant]
     Indication: GASTRIC DISORDER
     Route: 048
  17. OXYCODONE HCL [Concomitant]
     Indication: PAIN
     Route: 048

REACTIONS (4)
  - CHILLS [None]
  - FEELING JITTERY [None]
  - NAUSEA [None]
  - PAIN [None]
